FAERS Safety Report 6267696-3 (Version None)
Quarter: 2009Q3

REPORT INFORMATION
  Report Type: 
  Country: None (occurrence: None)
  Receive Date: 20090714
  Receipt Date: 20090703
  Transmission Date: 20100115
  Serious: Yes (Other)
  Sender: FDA-Public Use
  Company Number: CH-WYE-G03982409

PATIENT
  Age: 39 Year
  Sex: Female

DRUGS (5)
  1. EFFEXOR [Suspect]
     Indication: DEPRESSION
     Dosage: DOSE PROGRESSIVELY INCREASED
     Dates: start: 20051118, end: 20051205
  2. EFFEXOR [Suspect]
     Dosage: DOSE INCREASED UP TO 300 MG DAILY
     Dates: start: 20051206
  3. EFFEXOR [Suspect]
     Dosage: FROM AN UNKNOWN DATE 300 MG DAILY
  4. TEMESTA [Concomitant]
     Dosage: 1 DOSE EVERY 1 PRN
  5. TRITTICO [Concomitant]
     Indication: SLEEP DISORDER

REACTIONS (4)
  - BRUXISM [None]
  - ENDODONTIC PROCEDURE [None]
  - TOOTH ABSCESS [None]
  - TOOTH EXTRACTION [None]
